FAERS Safety Report 9360457 (Version 4)
Quarter: 2013Q3

REPORT INFORMATION
  Report Type: Spontaneous
  Country: US (occurrence: US)
  Receive Date: 20130621
  Receipt Date: 20130902
  Transmission Date: 20140515
  Serious: Yes (Death, Hospitalization, Other)
  Sender: FDA-Public Use
  Company Number: US-JNJFOC-20130607201

PATIENT
  Sex: Male
  Weight: 97.07 kg

DRUGS (23)
  1. ZYTIGA [Suspect]
     Indication: PROSTATE CANCER
     Dosage: 250 MGX4 TABLETS
     Route: 048
     Dates: start: 20121106
  2. ZYTIGA [Suspect]
     Indication: PROSTATE CANCER
     Route: 048
  3. LUPRON [Concomitant]
     Indication: PROSTATE CANCER
     Route: 065
     Dates: start: 2013
  4. ATENOLOL [Concomitant]
     Indication: BLOOD PRESSURE
     Route: 048
     Dates: start: 20120620
  5. CALCIUM [Concomitant]
     Route: 048
  6. CIPROFLOXACIN [Concomitant]
     Route: 048
     Dates: start: 20130604
  7. DETROL LA [Concomitant]
     Route: 048
     Dates: start: 20130123
  8. DOCQLACE [Concomitant]
     Route: 048
     Dates: start: 20121231
  9. FERROUS GLUCONATE [Concomitant]
     Route: 048
     Dates: start: 20120605
  10. FUROSEMIDE [Concomitant]
     Route: 048
     Dates: start: 20130224
  11. GABAPENTIN [Concomitant]
     Route: 048
     Dates: start: 20130118
  12. GLIMEPIRIDE [Concomitant]
     Route: 048
     Dates: start: 20110513
  13. HYDROCODONE-ACETAMINOPHEN [Concomitant]
     Indication: PAIN
     Dosage: 5 TO 25 MG TABLET 1 OR 2 TABLETS EVERY SIX HOURS
     Route: 048
     Dates: start: 20130108
  14. MAGNESIUM OXIDE [Concomitant]
     Route: 065
  15. MUPIROCIN [Concomitant]
     Route: 065
     Dates: start: 20130515
  16. OMEPRAZOLE [Concomitant]
     Route: 048
     Dates: start: 20120627
  17. OXYCONTIN [Concomitant]
     Route: 048
     Dates: start: 20120913
  18. POTASSIUM CHLORIDE [Concomitant]
     Route: 048
     Dates: start: 20130517
  19. PREDNISONE [Concomitant]
     Route: 048
     Dates: start: 20130214
  20. TAMSULOSIN HCL [Concomitant]
     Route: 048
     Dates: start: 20130219
  21. TEMAZEPAM [Concomitant]
     Indication: INSOMNIA
     Route: 048
     Dates: start: 20110901
  22. VENLAFAXINE HCL [Concomitant]
     Route: 048
     Dates: start: 20130327
  23. WARFARIN SODIUM [Concomitant]
     Dosage: 1 TABLET(4 MG) ON SUNDAYS AND THURSDAYS. TAKE ONE AND HALF TABLET(6 MG) ALL OTHER DAYS OF THE WEEK.
     Route: 048
     Dates: start: 20120616

REACTIONS (6)
  - Renal failure acute [Fatal]
  - Cardiac failure congestive [Fatal]
  - Hyperkalaemia [Fatal]
  - Prostate cancer [Unknown]
  - Transient ischaemic attack [Unknown]
  - Blood creatinine increased [Unknown]
